FAERS Safety Report 8533107-8 (Version None)
Quarter: 2012Q3

REPORT INFORMATION
  Report Type: 
  Country: None (occurrence: None)
  Receive Date: 20120724
  Receipt Date: 20120718
  Transmission Date: 20120928
  Serious: Yes (Other)
  Sender: FDA-Public Use
  Company Number: US-JNJFOC-20120709483

PATIENT
  Age: 7 Decade
  Sex: Female

DRUGS (2)
  1. XARELTO [Suspect]
     Indication: THROMBOSIS PROPHYLAXIS
     Route: 065
     Dates: start: 20120710
  2. XARELTO [Suspect]
     Indication: KNEE ARTHROPLASTY
     Route: 065
     Dates: start: 20120710

REACTIONS (5)
  - PLATELET COUNT DECREASED [None]
  - LIVER DISORDER [None]
  - HAEMORRHAGE [None]
  - HAEMOGLOBIN DECREASED [None]
  - ENCEPHALOPATHY [None]
